FAERS Safety Report 9467291 (Version 1)
Quarter: 2013Q3

REPORT INFORMATION
  Report Type: Spontaneous
  Country: US (occurrence: US)
  Receive Date: 20130821
  Receipt Date: 20130821
  Transmission Date: 20140515
  Serious: No
  Sender: FDA-Public Use
  Company Number: US-BIOGENIDEC-2013BI077743

PATIENT
  Sex: Female

DRUGS (5)
  1. AVONEX [Suspect]
     Indication: MULTIPLE SCLEROSIS
     Route: 030
     Dates: start: 20120928
  2. LYRICA [Concomitant]
     Indication: PAIN
     Route: 048
  3. ADVIL [Concomitant]
     Indication: PAIN
     Route: 048
  4. TYLENOL [Concomitant]
     Indication: PAIN
     Route: 048
  5. BENADRYL [Concomitant]
     Indication: UPPER-AIRWAY COUGH SYNDROME
     Route: 048

REACTIONS (2)
  - Memory impairment [Recovered/Resolved]
  - Confusional state [Recovered/Resolved]
